FAERS Safety Report 8810214 (Version 4)
Quarter: 2013Q1

REPORT INFORMATION
  Report Type: Spontaneous
  Country: US (occurrence: US)
  Receive Date: 20120926
  Receipt Date: 20130131
  Transmission Date: 20140127
  Serious: No
  Sender: FDA-Public Use
  Company Number: US-009507513-1209USA002069

PATIENT
  Sex: Female
  Weight: 55.78 kg

DRUGS (3)
  1. VICTRELIS [Suspect]
     Indication: HEPATITIS C
     Dosage: UNK
     Dates: start: 20120903, end: 20121125
  2. RIBAVIRIN [Suspect]
     Indication: HEPATITIS C
     Dosage: UNK
     Dates: start: 20120813, end: 20121125
  3. PEGASYS [Suspect]
     Indication: HEPATITIS C
     Dosage: UNK
     Dates: start: 20120813, end: 20121125

REACTIONS (15)
  - Drug ineffective [Unknown]
  - Memory impairment [Unknown]
  - Fungal infection [Unknown]
  - Balance disorder [Unknown]
  - Weight decreased [Unknown]
  - Dysgeusia [Unknown]
  - Nausea [Unknown]
  - Dysgeusia [Unknown]
  - Back pain [Not Recovered/Not Resolved]
  - Arthralgia [Unknown]
  - Dizziness [Unknown]
  - Pain in extremity [Unknown]
  - Alopecia [Unknown]
  - Head discomfort [Unknown]
  - Malaise [Unknown]
